FAERS Safety Report 6340921-6 (Version None)
Quarter: 2009Q3

REPORT INFORMATION
  Report Type: 
  Country: None (occurrence: None)
  Receive Date: 20090904
  Receipt Date: 20090824
  Transmission Date: 20100115
  Serious: Yes (Other)
  Sender: FDA-Public Use
  Company Number: JP-PFIZER INC-2009202234

PATIENT
  Age: 88 Year

DRUGS (2)
  1. UNASYN [Suspect]
     Indication: PNEUMONIA
     Dosage: 3 G, 2X/DAY
     Route: 042
     Dates: start: 20090223, end: 20090303
  2. LASIX [Suspect]
     Indication: CARDIAC FAILURE
     Dosage: 20 MG, 2X/DAY
     Route: 042
     Dates: start: 20090223

REACTIONS (1)
  - LEUKOPENIA [None]
